FAERS Safety Report 5201983-2 (Version None)
Quarter: 2007Q1

REPORT INFORMATION
  Report Type: 
  Country: None (occurrence: None)
  Receive Date: 20070109
  Receipt Date: 20070103
  Transmission Date: 20070707
  Serious: Yes (Death, Life-Threatening, Other)
  Sender: FDA-Public Use
  Company Number: GB-JNJFOC-20061204985

PATIENT
  Sex: Male
  Weight: 98 kg

DRUGS (12)
  1. REMICADE [Suspect]
     Route: 042
  2. REMICADE [Suspect]
     Indication: RHEUMATOID ARTHRITIS
     Route: 042
  3. SULFASALAZINE [Concomitant]
     Route: 065
  4. METHOTREXATE [Concomitant]
     Route: 065
  5. METHYLPREDNISOLONE ACETATE [Concomitant]
     Route: 065
  6. FOLIC ACID [Concomitant]
     Route: 065
  7. HYDROXYCHLOROQUINE SULFATE [Concomitant]
     Route: 065
  8. LANSOPRAZOLE [Concomitant]
     Route: 065
  9. ACETAMINOPHEN [Concomitant]
     Route: 065
  10. REFECOXIB [Concomitant]
     Route: 065
  11. SODIUM BICARBONATE [Concomitant]
     Route: 065
  12. TRAMADOL HCL [Concomitant]
     Route: 065

REACTIONS (1)
  - DEATH [None]
